FAERS Safety Report 4456074-5 (Version None)
Quarter: 2004Q3

REPORT INFORMATION
  Report Type: 
  Country: None (occurrence: None)
  Receive Date: 20040920
  Receipt Date: 20040907
  Transmission Date: 20050211
  Serious: Yes (Other)
  Sender: FDA-Public Use
  Company Number: S04-USA-05565-01

PATIENT
  Age: 39 Year
  Sex: Female

DRUGS (5)
  1. THYROID TAB [Suspect]
     Indication: HYPOTHYROIDISM
     Dosage: 0.5 GRAIN QD PO
     Route: 048
     Dates: start: 20040606, end: 20040619
  2. THYROID TAB [Suspect]
     Indication: HYPOTHYROIDISM
     Dosage: 0.5 GRAIN BID PO
     Route: 048
     Dates: start: 20040620, end: 20040626
  3. THYROID TAB [Suspect]
     Indication: HYPOTHYROIDISM
     Dosage: 1 GRAIN BID PO
     Route: 048
     Dates: start: 20040627, end: 20040710
  4. THYROID TAB [Suspect]
     Indication: HYPOTHYROIDISM
     Dosage: 1.5 GRAIN BID PO
     Route: 048
     Dates: start: 20040711, end: 20040718
  5. THYROID TAB [Suspect]
     Indication: HYPOTHYROIDISM
     Dosage: 0.5 GRAIN BID PO
     Route: 048
     Dates: start: 20040720

REACTIONS (16)
  - ABORTION SPONTANEOUS [None]
  - BLISTER [None]
  - BLOOD THYROID STIMULATING HORMONE DECREASED [None]
  - DRUG EXPOSURE DURING PREGNANCY [None]
  - DYSPHAGIA [None]
  - FATIGUE [None]
  - FEELING HOT [None]
  - FOETAL GROWTH RETARDATION [None]
  - HEART RATE INCREASED [None]
  - HYPERHIDROSIS [None]
  - HYPERTHYROIDISM [None]
  - PALPITATIONS [None]
  - PHARYNGOLARYNGEAL PAIN [None]
  - PREGNANCY [None]
  - ULTRASOUND THYROID ABNORMAL [None]
  - VAGINAL HAEMORRHAGE [None]
